FAERS Safety Report 10154099 (Version 1)
Quarter: 2014Q2

REPORT INFORMATION
  Report Type: Spontaneous
  Country: CN (occurrence: CN)
  Receive Date: 20140506
  Receipt Date: 20140506
  Transmission Date: 20141212
  Serious: Yes (Hospitalization, Disabling)
  Sender: FDA-Public Use
  Company Number: CN-ROCHE-1393016

PATIENT
  Age: 42 Year
  Sex: Male

DRUGS (9)
  1. MABTHERA [Suspect]
     Indication: NON-HODGKIN^S LYMPHOMA
     Route: 065
     Dates: start: 20060321
  2. METHOTREXATE [Concomitant]
     Indication: NON-HODGKIN^S LYMPHOMA
     Route: 065
     Dates: start: 20060304
  3. VINCRISTINE [Concomitant]
     Indication: NON-HODGKIN^S LYMPHOMA
     Route: 065
     Dates: start: 20060304
  4. DEXAMETHASONE [Concomitant]
     Indication: NON-HODGKIN^S LYMPHOMA
     Route: 065
     Dates: start: 20060304
  5. CARMUSTINE [Concomitant]
     Indication: NON-HODGKIN^S LYMPHOMA
     Route: 065
     Dates: start: 20060322
  6. ETOPOSIDE [Concomitant]
     Indication: NON-HODGKIN^S LYMPHOMA
     Route: 065
     Dates: start: 20060322
  7. IFOSFAMIDE [Concomitant]
     Indication: NON-HODGKIN^S LYMPHOMA
     Route: 065
     Dates: start: 20060418
  8. TENIPOSIDE [Concomitant]
     Indication: NON-HODGKIN^S LYMPHOMA
     Route: 065
     Dates: start: 20070120
  9. CYTOSINE ARABINOSIDE [Concomitant]
     Indication: NON-HODGKIN^S LYMPHOMA

REACTIONS (8)
  - Hemiplegia [Unknown]
  - Blindness [Unknown]
  - Hypersensitivity [Unknown]
  - Mouth ulceration [Recovering/Resolving]
  - Muscle rigidity [Recovering/Resolving]
  - Heart rate increased [Recovering/Resolving]
  - Dyspnoea [Recovering/Resolving]
  - Vitreous opacities [Unknown]
